FAERS Safety Report 7950579-8 (Version None)
Quarter: 2011Q4

REPORT INFORMATION
  Report Type: 
  Country: None (occurrence: None)
  Receive Date: 20111130
  Receipt Date: 20111118
  Transmission Date: 20120403
  Serious: Yes (Hospitalization)
  Sender: FDA-Public Use
  Company Number: US-ASTRAZENECA-2011SE59593

PATIENT
  Age: 69 Year
  Sex: Male

DRUGS (9)
  1. NEXIUM [Suspect]
     Route: 048
  2. XANAX [Concomitant]
  3. ALPRAZOLAM [Concomitant]
  4. ASPIRIN [Concomitant]
  5. LOVASTATIN [Concomitant]
  6. GLIPIZIDE [Concomitant]
  7. METFORMIN HCL [Concomitant]
  8. ALPHAGAN [Concomitant]
  9. IBUPROFEN [Concomitant]

REACTIONS (4)
  - VISUAL IMPAIRMENT [None]
  - EXTRAOCULAR MUSCLE PARESIS [None]
  - RASH [None]
  - GLAUCOMA [None]
